FAERS Safety Report 15285663 (Version 1)
Quarter: 2018Q3

REPORT INFORMATION
  Report Type: Spontaneous
  Country: FR (occurrence: FR)
  Receive Date: 20180816
  Receipt Date: 20180816
  Transmission Date: 20181010
  Serious: Yes (Hospitalization)
  Sender: FDA-Public Use
  Company Number: FR-TEVA-2018-FR-941362

PATIENT
  Age: 89 Year
  Sex: Male
  Weight: 70 kg

DRUGS (3)
  1. ALLOPURINOL. [Suspect]
     Active Substance: ALLOPURINOL
     Indication: GOUT
     Dosage: 100 MILLIGRAM DAILY;
     Route: 048
     Dates: start: 20180622, end: 20180703
  2. ORBENINE [Concomitant]
     Active Substance: CLOXACILLIN SODIUM
     Indication: WOUND
     Dosage: 3 GRAM DAILY;
     Route: 048
     Dates: start: 20180604, end: 20180609
  3. AUGMENTIN [Suspect]
     Active Substance: AMOXICILLIN\CLAVULANATE POTASSIUM
     Indication: WOUND
     Dosage: 1.5 DOSAGE FORMS DAILY;
     Route: 048
     Dates: start: 20180610, end: 20180617

REACTIONS (2)
  - Jaundice [Recovered/Resolved]
  - Hepatitis cholestatic [Recovering/Resolving]

NARRATIVE: CASE EVENT DATE: 201807
